FAERS Safety Report 12346582 (Version 1)
Quarter: 2016Q2

REPORT INFORMATION
  Report Type: Spontaneous
  Country: US (occurrence: None)
  Receive Date: 20160506
  Receipt Date: 20160506
  Transmission Date: 20160815
  Serious: Yes (Other)
  Sender: FDA-Public Use
  Company Number: None

PATIENT
  Age: 51 Year
  Sex: Female
  Weight: 78.47 kg

DRUGS (12)
  1. TIGER BALM [Concomitant]
     Active Substance: CAMPHOR (SYNTHETIC)\CAPSICUM OLEORESIN\MENTHOL\METHYL SALICYLATE
  2. ICY HOT [Concomitant]
     Active Substance: MENTHOL\METHYL SALICYLATE
  3. GABAPENTIN. [Concomitant]
     Active Substance: GABAPENTIN
  4. TYLENOL EXTRA STREGNTH [Concomitant]
  5. CANE [Concomitant]
  6. TYLENOL [Concomitant]
     Active Substance: ACETAMINOPHEN
  7. LEVBID [Concomitant]
     Active Substance: HYOSCYAMINE SULFATE
  8. BIOFREEZE [Concomitant]
     Active Substance: MENTHOL
  9. TRINTELLIX [Suspect]
     Active Substance: VORTIOXETINE HYDROBROMIDE
     Indication: DEPRESSION
     Route: 048
  10. KLONOPIN [Concomitant]
     Active Substance: CLONAZEPAM
  11. STIM MACHINE [Concomitant]
  12. ZOFRAN [Concomitant]
     Active Substance: ONDANSETRON HYDROCHLORIDE

REACTIONS (5)
  - Fatigue [None]
  - Therapy cessation [None]
  - Nausea [None]
  - Therapy change [None]
  - Abdominal pain [None]

NARRATIVE: CASE EVENT DATE: 20160413
